FAERS Safety Report 9321059 (Version 2)
Quarter: 2013Q2

REPORT INFORMATION
  Report Type: Spontaneous
  Country: CA (occurrence: None)
  Receive Date: 20130528
  Receipt Date: 20130528
  Transmission Date: 20140414
  Serious: Yes (Hospitalization)
  Sender: FDA-Public Use
  Company Number: 2012AP001039

PATIENT
  Age: 49 Year
  Sex: Male
  Weight: 55 kg

DRUGS (13)
  1. FERRIPROX [Suspect]
     Indication: IRON OVERLOAD
     Route: 048
     Dates: start: 20120108, end: 20120413
  2. FERRIPROX [Suspect]
     Indication: HEREDITARY HAEMOCHROMATOSIS
     Route: 048
     Dates: start: 20120108, end: 20120413
  3. DERFERAL [Concomitant]
  4. CEFTRIAXONE [Concomitant]
  5. SPIRONOLACTONE [Concomitant]
  6. INSULIN LISPRO [Concomitant]
  7. ENOXAPARIN [Concomitant]
  8. ZOPICLONE [Concomitant]
  9. SYNTHROID [Concomitant]
  10. OMEPRAZOLE [Concomitant]
  11. INSULIN GLARGINE [Concomitant]
  12. FUROSEMIDE [Concomitant]
  13. PANTOPRAZOLE [Concomitant]

REACTIONS (4)
  - Agranulocytosis [None]
  - Pyrexia [None]
  - Productive cough [None]
  - Epstein-Barr virus test positive [None]
